FAERS Safety Report 15750872 (Version 1)
Quarter: 2018Q4

REPORT INFORMATION
  Report Type: Spontaneous
  Country: PT (occurrence: PT)
  Receive Date: 20181221
  Receipt Date: 20181221
  Transmission Date: 20190205
  Serious: Yes (Hospitalization)
  Sender: FDA-Public Use
  Company Number: PT-HERITAGE PHARMACEUTICALS-2018HTG00463

PATIENT
  Age: 86 Year
  Sex: Male

DRUGS (3)
  1. ACETAZOLAMIDE. [Suspect]
     Active Substance: ACETAZOLAMIDE
     Dosage: 250 MG ^ID^
     Route: 048
  2. EYEWASHES [Concomitant]
     Route: 065
  3. RANITIDINE. [Concomitant]
     Active Substance: RANITIDINE
     Route: 065

REACTIONS (2)
  - Ataxia [Recovered/Resolved]
  - Nervous system disorder [Recovered/Resolved]
